FAERS Safety Report 9639020 (Version 2)
Quarter: 2013Q4

REPORT INFORMATION
  Report Type: Spontaneous
  Country: LB (occurrence: None)
  Receive Date: 20131018
  Receipt Date: 20131227
  Transmission Date: 20140711
  Serious: Yes (Disabling)
  Sender: FDA-Public Use
  Company Number: AXC-2013-000534

PATIENT
  Age: 32 Year
  Sex: Female

DRUGS (1)
  1. PYLERA [Suspect]
     Indication: HELICOBACTER INFECTION
     Route: 048

REACTIONS (9)
  - Fatigue [None]
  - Nausea [None]
  - Abdominal pain [None]
  - Faeces discoloured [None]
  - Chromaturia [None]
  - Decreased appetite [None]
  - Vision blurred [None]
  - Chromaturia [None]
  - Faeces discoloured [None]
